FAERS Safety Report 8002983-X (Version None)
Quarter: 2011Q4

REPORT INFORMATION
  Report Type: 
  Country: None (occurrence: None)
  Receive Date: 20111222
  Receipt Date: 20110629
  Transmission Date: 20120403
  Serious: No
  Sender: FDA-Public Use
  Company Number: US-GLAXOSMITHKLINE-A0933879A

PATIENT
  Age: 60 Year
  Sex: Male

DRUGS (3)
  1. AVODART [Suspect]
     Indication: HAIR GROWTH ABNORMAL
     Route: 048
     Dates: start: 20100101, end: 20110301
  2. PAXIL [Suspect]
     Route: 048
     Dates: start: 20110101, end: 20110301
  3. NO CONCURRENT MEDICATION [Concomitant]

REACTIONS (1)
  - SKIN DISCOLOURATION [None]
